FAERS Safety Report 18347730 (Version 1)
Quarter: 2020Q4

REPORT INFORMATION
  Report Type: Report from Study
  Country: US (occurrence: US)
  Receive Date: 20201006
  Receipt Date: 20201006
  Transmission Date: 20210114
  Serious: No
  Sender: FDA-Public Use
  Company Number: NVSC2020US263144

PATIENT
  Sex: Female

DRUGS (1)
  1. ZARXIO [Suspect]
     Active Substance: FILGRASTIM-SNDZ
     Indication: INFECTION
     Dosage: 480 UG, UNKNOWN
     Route: 065

REACTIONS (2)
  - White blood cell count increased [Recovering/Resolving]
  - Expired product administered [Recovering/Resolving]
